FAERS Safety Report 8048651-X (Version None)
Quarter: 2012Q1

REPORT INFORMATION
  Report Type: 
  Country: None (occurrence: None)
  Receive Date: 20120117
  Receipt Date: 20120107
  Transmission Date: 20120608
  Serious: Yes (Other)
  Sender: FDA-Public Use
  Company Number: JP-ELI_LILLY_AND_COMPANY-JP201110005861

PATIENT
  Age: 68 Year
  Sex: Female

DRUGS (1)
  1. FORTEO [Suspect]
     Indication: OSTEOPOROSIS
     Dosage: UNK
     Route: 058
     Dates: start: 20111019

REACTIONS (7)
  - SICK SINUS SYNDROME [None]
  - BONE DENSITY DECREASED [None]
  - PALPITATIONS [None]
  - FOOT FRACTURE [None]
  - HEART RATE INCREASED [None]
  - ANGINA PECTORIS [None]
  - ABDOMINAL PAIN UPPER [None]
